FAERS Safety Report 8789018 (Version 2)
Quarter: 2013Q4

REPORT INFORMATION
  Report Type: Spontaneous
  Country: US (occurrence: US)
  Receive Date: 20120916
  Receipt Date: 20131101
  Transmission Date: 20140711
  Serious: No
  Sender: FDA-Public Use
  Company Number: US-009507513-1208USA010195

PATIENT
  Age: 65 Year
  Sex: Male

DRUGS (2)
  1. EMEND [Suspect]
     Indication: PROPHYLAXIS OF NAUSEA AND VOMITING
     Dosage: 125 MG, ON DAY 1
     Route: 048
  2. EMEND [Suspect]
     Dosage: 80 MG, ON  DAY 2 AND DAY 3
     Route: 048

REACTIONS (1)
  - Headache [Recovered/Resolved]
